FAERS Safety Report 17521100 (Version 1)
Quarter: 2020Q1

REPORT INFORMATION
  Report Type: Spontaneous
  Country: US (occurrence: US)
  Receive Date: 20200310
  Receipt Date: 20200310
  Transmission Date: 20200409
  Serious: Yes (Other)
  Sender: FDA-Public Use
  Company Number: US-PFIZER INC-2020102103

PATIENT
  Age: 35 Year
  Sex: Male

DRUGS (1)
  1. FLUCONAZOLE. [Suspect]
     Active Substance: FLUCONAZOLE
     Indication: ONYCHOMYCOSIS
     Dosage: 100 MG, UNK
     Route: 048

REACTIONS (3)
  - Erythema multiforme [Recovered/Resolved]
  - Off label use [Unknown]
  - Product use in unapproved indication [Unknown]
